FAERS Safety Report 6536477-5 (Version None)
Quarter: 2010Q1

REPORT INFORMATION
  Report Type: 
  Country: None (occurrence: None)
  Receive Date: 20100113
  Receipt Date: 20100108
  Transmission Date: 20100710
  Serious: Yes (Other)
  Sender: FDA-Public Use
  Company Number: GB-MERCK-1001GBR00001

PATIENT
  Age: 81 Year
  Sex: Male

DRUGS (8)
  1. PROSCAR [Suspect]
     Indication: PROSTATOMEGALY
     Route: 048
     Dates: start: 20091101, end: 20090101
  2. ASPIRIN [Concomitant]
     Indication: DRESSLER'S SYNDROME
     Route: 065
     Dates: start: 20040101
  3. FUROSEMIDE [Concomitant]
     Indication: DRESSLER'S SYNDROME
     Route: 065
     Dates: start: 20040101
  4. LANSOPRAZOLE [Concomitant]
     Route: 065
  5. BENSERAZIDE HYDROCHLORIDE AND LEVODOPA [Concomitant]
     Indication: PARKINSON'S DISEASE
     Route: 065
  6. ROTIGOTINE [Concomitant]
     Indication: PARKINSON'S DISEASE
     Route: 061
     Dates: start: 20080101
  7. RAMIPRIL [Concomitant]
     Indication: DRESSLER'S SYNDROME
     Route: 065
     Dates: start: 20040101
  8. ZOCOR [Concomitant]
     Indication: DRESSLER'S SYNDROME
     Route: 065
     Dates: start: 20040101

REACTIONS (5)
  - AMNESIA [None]
  - COORDINATION ABNORMAL [None]
  - FALL [None]
  - HALLUCINATION [None]
  - OVERDOSE [None]
